FAERS Safety Report 4442114-6 (Version None)
Quarter: 2004Q3

REPORT INFORMATION
  Report Type: 
  Country: None (occurrence: None)
  Receive Date: 20040903
  Receipt Date: 20040728
  Transmission Date: 20050211
  Serious: Yes (Disabling)
  Sender: FDA-Public Use
  Company Number: 2004UW13719

PATIENT
  Age: 56 Year
  Sex: Male
  Weight: 85.2762 kg

DRUGS (5)
  1. CRESTOR [Suspect]
     Indication: HYPERLIPIDAEMIA
     Dosage: 10 MG QD PO
     Route: 048
     Dates: start: 20040526, end: 20040626
  2. CELEBREX [Suspect]
     Dosage: 200 MG QD PO
     Route: 048
     Dates: start: 20040301
  3. DILANTIN [Concomitant]
  4. GLUCOSAMINE [Concomitant]
  5. PHENOBARBITAL TAB [Concomitant]

REACTIONS (1)
  - PROTEINURIA [None]
